FAERS Safety Report 25963258 (Version 1)
Quarter: 2025Q4

REPORT INFORMATION
  Report Type: Spontaneous
  Country: CN (occurrence: CN)
  Receive Date: 20251027
  Receipt Date: 20251027
  Transmission Date: 20260117
  Serious: Yes (Other)
  Sender: PFIZER
  Company Number: CN-PFIZER INC-PV202500125371

PATIENT
  Age: 8 Year
  Sex: Male
  Weight: 31.1 kg

DRUGS (2)
  1. METHOTREXATE SODIUM [Suspect]
     Active Substance: METHOTREXATE SODIUM
     Indication: Malignant glioma
     Dosage: 12.5 MG, 1X/DAY
     Route: 037
     Dates: start: 20251002, end: 20251002
  2. METHOTREXATE SODIUM [Suspect]
     Active Substance: METHOTREXATE SODIUM
     Indication: Malignant glioma
     Dosage: 5 G, 1X/DAY
     Route: 041
     Dates: start: 20251002, end: 20251002

REACTIONS (3)
  - Pyrexia [Recovering/Resolving]
  - Drug level increased [Recovering/Resolving]
  - Off label use [Unknown]

NARRATIVE: CASE EVENT DATE: 20251002
